FAERS Safety Report 17560411 (Version 10)
Quarter: 2021Q1

REPORT INFORMATION
  Report Type: Spontaneous
  Country: US (occurrence: US)
  Receive Date: 20200319
  Receipt Date: 20210226
  Transmission Date: 20210419
  Serious: Yes (Hospitalization, Other)
  Sender: FDA-Public Use
  Company Number: US-PFIZER INC-2020119381

PATIENT
  Age: 61 Year
  Sex: Female

DRUGS (1)
  1. SUTENT [Suspect]
     Active Substance: SUNITINIB MALATE
     Indication: UTERINE CANCER
     Dosage: 1 DF, CYCLIC (DAILY FOR 4 WEEKS FOLLOWED BY 2 WEEKS OFF)
     Dates: start: 202002

REACTIONS (17)
  - Chromaturia [Unknown]
  - Vomiting [Not Recovered/Not Resolved]
  - Dysuria [Unknown]
  - Pain in extremity [Unknown]
  - Vertebral column mass [Unknown]
  - Insomnia [Unknown]
  - Laryngitis [Unknown]
  - Diarrhoea [Unknown]
  - Abdominal pain [Not Recovered/Not Resolved]
  - Fatigue [Unknown]
  - Arthralgia [Unknown]
  - Pain [Unknown]
  - Off label use [Unknown]
  - Illness [Unknown]
  - Nausea [Unknown]
  - Renal failure [Unknown]
  - Product use in unapproved indication [Unknown]

NARRATIVE: CASE EVENT DATE: 2020
